FAERS Safety Report 7935077-X (Version None)
Quarter: 2011Q4

REPORT INFORMATION
  Report Type: 
  Country: None (occurrence: None)
  Receive Date: 20111122
  Receipt Date: 20110826
  Transmission Date: 20120403
  Serious: No
  Sender: FDA-Public Use
  Company Number: US-BAYER-2011-085043

PATIENT
  Age: 85 Year
  Sex: Female
  Weight: 68 kg

DRUGS (4)
  1. RAMIPRIL [Concomitant]
  2. ALEVE (CAPLET) [Suspect]
     Dosage: 1 DF, PRN
     Route: 048
     Dates: end: 20110825
  3. LOXAPINE [Concomitant]
  4. LEVOXYL [Concomitant]

REACTIONS (1)
  - ABDOMINAL PAIN LOWER [None]
